FAERS Safety Report 8320179-9 (Version None)
Quarter: 2012Q2

REPORT INFORMATION
  Report Type: 
  Country: None (occurrence: None)
  Receive Date: 20120430
  Receipt Date: 20120417
  Transmission Date: 20120825
  Serious: Yes (Hospitalization)
  Sender: FDA-Public Use
  Company Number: US-BIOGENIDEC-2011BI029570

PATIENT
  Age: 60 Year
  Sex: Female

DRUGS (1)
  1. AVONEX [Suspect]
     Indication: MULTIPLE SCLEROSIS
     Route: 030
     Dates: start: 20080618

REACTIONS (8)
  - ARTHRITIS [None]
  - POOR PERIPHERAL CIRCULATION [None]
  - MUSCULOSKELETAL STIFFNESS [None]
  - FATIGUE [None]
  - FALL [None]
  - OEDEMA PERIPHERAL [None]
  - ROTATOR CUFF REPAIR [None]
  - ROTATOR CUFF SYNDROME [None]
